FAERS Safety Report 14069498 (Version 1)
Quarter: 2017Q4

REPORT INFORMATION
  Report Type: Report from Study
  Country: BR (occurrence: BR)
  Receive Date: 20171010
  Receipt Date: 20171010
  Transmission Date: 20180321
  Serious: Yes (Other)
  Sender: FDA-Public Use
  Company Number: BR-JNJFOC-20171004319

PATIENT
  Sex: Female
  Weight: 44 kg

DRUGS (8)
  1. CITONEURIN [Concomitant]
     Active Substance: CYANOCOBALAMIN\PYRIDOXINE HYDROCHLORIDE\THIAMINE
     Route: 065
  2. SIMPONI [Suspect]
     Active Substance: GOLIMUMAB
     Indication: RHEUMATOID ARTHRITIS
     Route: 058
  3. SIRDALUD [Concomitant]
     Active Substance: TIZANIDINE
     Route: 065
  4. SIMPONI [Suspect]
     Active Substance: GOLIMUMAB
     Indication: RHEUMATOID ARTHRITIS
     Route: 058
     Dates: start: 20140701, end: 20151201
  5. AMITRIPTYLINE [Concomitant]
     Active Substance: AMITRIPTYLINE
     Route: 065
  6. PRELONE [Concomitant]
     Active Substance: PREDNISOLONE
     Route: 065
  7. GABAPENTIN. [Concomitant]
     Active Substance: GABAPENTIN
     Route: 065
  8. VITAMIN B1 W/VITAMIN B12 NOS/VITAMIN B6 [Concomitant]
     Route: 065

REACTIONS (7)
  - Limb injury [Unknown]
  - Arthralgia [Recovering/Resolving]
  - Foot deformity [Not Recovered/Not Resolved]
  - Localised infection [Unknown]
  - Neuropathy peripheral [Unknown]
  - Bone decalcification [Not Recovered/Not Resolved]
  - Osteomyelitis [Unknown]

NARRATIVE: CASE EVENT DATE: 2014
